FAERS Safety Report 8242838-9 (Version None)
Quarter: 2012Q1

REPORT INFORMATION
  Report Type: 
  Country: None (occurrence: None)
  Receive Date: 20120329
  Receipt Date: 20120320
  Transmission Date: 20120608
  Serious: Yes (Other)
  Sender: FDA-Public Use
  Company Number: FR-NOVOPROD-348004

PATIENT
  Age: 4 Week
  Sex: Female

DRUGS (15)
  1. AZATHIOPRINE [Suspect]
     Dosage: 50 MG
     Route: 064
     Dates: end: 20110127
  2. TACROLIMUS [Suspect]
     Dosage: UNK
     Route: 064
     Dates: end: 20110127
  3. MUCOMYST [Suspect]
     Dosage: 600 MG, QD
     Route: 064
  4. CALTRATE                           /00751519/ [Concomitant]
     Dosage: 1.2 G, QD
     Route: 064
  5. URSOLVAN [Concomitant]
     Route: 064
  6. COLIMYCINE                         /00013203/ [Suspect]
     Dosage: UNK
     Route: 064
  7. AMARYL [Suspect]
     Dosage: 5 MG
     Route: 064
  8. PRAVASTATIN [Suspect]
     Dosage: 10 MG, QD
     Route: 064
  9. ASPIRIN [Suspect]
     Dosage: 75 MG, QD
     Route: 064
  10. CREON [Concomitant]
     Route: 064
  11. INSULATARD NPH HUMAN [Suspect]
     Indication: DIABETES MELLITUS
     Dosage: 12 IU, QD
     Route: 064
  12. PREDNISONE TAB [Suspect]
     Dosage: 6 MG, QD
     Route: 064
     Dates: end: 20110127
  13. STEROGYL                           /00107901/ [Concomitant]
     Indication: OSTEOPOROSIS
     Dosage: 5 DROPS
     Route: 064
  14. TRANDATE [Suspect]
     Dosage: UNK
     Route: 064
  15. TOCO [Concomitant]
     Route: 064

REACTIONS (3)
  - PREMATURE BABY [None]
  - FOETAL GROWTH RESTRICTION [None]
  - FOETAL EXPOSURE DURING PREGNANCY [None]
